FAERS Safety Report 17414372 (Version 1)
Quarter: 2020Q1

REPORT INFORMATION
  Report Type: Report from Study
  Country: US (occurrence: US)
  Receive Date: 20200213
  Receipt Date: 20200213
  Transmission Date: 20200409
  Serious: Yes (Other)
  Sender: FDA-Public Use
  Company Number: NVSC2020US038364

PATIENT
  Age: 57 Year
  Sex: Female

DRUGS (1)
  1. COSENTYX [Suspect]
     Active Substance: SECUKINUMAB
     Indication: PSORIASIS
     Dosage: 300 MG, Q4W
     Route: 058

REACTIONS (7)
  - Arthralgia [Unknown]
  - Diverticulitis [Unknown]
  - Nausea [Unknown]
  - Psoriasis [Unknown]
  - Oral pain [Unknown]
  - Dyspepsia [Unknown]
  - Mouth ulceration [Unknown]
